FAERS Safety Report 17972186 (Version 1)
Quarter: 2020Q3

REPORT INFORMATION
  Report Type: Other
  Country: GB (occurrence: GB)
  Receive Date: 20200702
  Receipt Date: 20200702
  Transmission Date: 20201103
  Serious: Yes (Other)
  Sender: FDA-Public Use
  Company Number: GB-EMCURE PHARMACEUTICALS LTD-2020-EPL-000833

PATIENT
  Age: 38 Year
  Sex: Female
  Weight: 52 kg

DRUGS (10)
  1. SERTRALINE HYDROCHLORIDE. [Suspect]
     Active Substance: SERTRALINE HYDROCHLORIDE
     Indication: PRODUCT USED FOR UNKNOWN INDICATION
     Dosage: 50 MILLIGRAM, DAILY
     Dates: start: 20181105
  2. MIRTAZAPINE. [Concomitant]
     Active Substance: MIRTAZAPINE
     Dosage: 1 DOSAGE FORM, DAILY, AT BEDTIME
     Dates: start: 20190205
  3. AMITRIPTYLINE HYDROCHLORIDE. [Concomitant]
     Active Substance: AMITRIPTYLINE HYDROCHLORIDE
     Dosage: UNK, TAKE ONE OR TWO TABLET AT NIGHT
     Dates: start: 20181123
  4. HYDROXOCOBALAMIN [Concomitant]
     Active Substance: HYDROXOCOBALAMIN
     Dosage: UNK, AS DIRECTED
     Dates: start: 20200203
  5. FOLIC ACID. [Concomitant]
     Active Substance: FOLIC ACID
     Dosage: 1 DOSAGE FORM, DAILY
     Dates: start: 20180503
  6. GABAPENTIN. [Concomitant]
     Active Substance: GABAPENTIN
     Dosage: 2 DOSAGE FORM, DAILY
     Dates: start: 20200604
  7. SOLVAZINC [Concomitant]
     Dosage: 1 DOSAGE FORM, DAILY
     Dates: start: 20181018
  8. CLONAZEPAM. [Concomitant]
     Active Substance: CLONAZEPAM
     Dosage: 1 DOSAGE FORM, PRN, AT NIGHT
     Dates: start: 20180503
  9. NEOMAG [Concomitant]
     Dosage: 6 DOSAGE FORM, DAILY FOR 4 DAYS THE
     Dates: start: 20181018
  10. FUROSEMIDE. [Concomitant]
     Active Substance: FUROSEMIDE
     Dosage: 1 DOSAGE FORM, DAILY, MORNING
     Dates: start: 20200608

REACTIONS (1)
  - Photodermatosis [Not Recovered/Not Resolved]
